FAERS Safety Report 4280115-1 (Version None)
Quarter: 2004Q1

REPORT INFORMATION
  Report Type: 
  Country: None (occurrence: None)
  Receive Date: 20040128
  Receipt Date: 20040122
  Transmission Date: 20041129
  Serious: Yes (Life-Threatening)
  Sender: FDA-Public Use
  Company Number: DE-BRISTOL-MYERS SQUIBB COMPANY-12484457

PATIENT
  Age: 36 Year
  Sex: Male
  Weight: 58 kg

DRUGS (4)
  1. SUSTIVA [Suspect]
     Indication: HIV INFECTION
     Route: 048
     Dates: start: 20030101, end: 20031101
  2. LAMIVUDINE [Suspect]
  3. TENOFOVIR [Suspect]
  4. TRIMETHOPRIM-SULFAMETHOXAZOLE [Concomitant]

REACTIONS (8)
  - BALANCE DISORDER [None]
  - NAUSEA [None]
  - NYSTAGMUS [None]
  - OPTIC NEURITIS [None]
  - PAPILLOEDEMA [None]
  - SCOTOMA [None]
  - VERTIGO [None]
  - VOMITING [None]
